FAERS Safety Report 15122755 (Version 1)
Quarter: 2018Q3

REPORT INFORMATION
  Report Type: Spontaneous
  Country: GB (occurrence: GB)
  Receive Date: 20180709
  Receipt Date: 20180709
  Transmission Date: 20181010
  Serious: Yes (Other)
  Sender: FDA-Public Use
  Company Number: GB-PFIZER INC-2018269978

PATIENT
  Age: 71 Year
  Sex: Female

DRUGS (12)
  1. CASSIA SENNA [Concomitant]
     Active Substance: HERBALS\SENNOSIDES
     Dosage: 10 ML, 1X/DAY (7.5MG/5ML ORAL SOLUTION SUGAR FREE TO BE TAKEN AT NIGHT)
     Route: 048
     Dates: start: 20171204
  2. LACTULOSE. [Concomitant]
     Active Substance: LACTULOSE
     Dosage: 15 ML, UNK (3.1?3.7G/5ML ORAL SOLUTION 15ML TWICE DAILY AS NEEDED)
  3. CYCLOPHOSPHAMIDE. [Suspect]
     Active Substance: CYCLOPHOSPHAMIDE
     Indication: CHEMOTHERAPY
     Dosage: UNK
     Dates: start: 20171129
  4. DACTINOMYCIN [Suspect]
     Active Substance: DACTINOMYCIN
     Indication: CHEMOTHERAPY
     Dosage: UNK
     Dates: start: 20171129
  5. DEXAMETHASONE. [Concomitant]
     Active Substance: DEXAMETHASONE
     Dosage: 2 MG, 1X/DAY
     Dates: start: 20171124, end: 20171206
  6. LEVOTHYROXINE. [Concomitant]
     Active Substance: LEVOTHYROXINE
     Dosage: 75 UG, 1X/DAY, IN THE MORNING
  7. OMEPRAZOLE. [Concomitant]
     Active Substance: OMEPRAZOLE
     Dosage: 20 MG, 1X/DAY
  8. ORAMORPH [Concomitant]
     Active Substance: MORPHINE SULFATE
     Dosage: UNK, 1.25?2.5MG AS NEEDED
     Dates: start: 20171206
  9. ZOPICLONE [Concomitant]
     Active Substance: ZOPICLONE
     Dosage: 3.75 MG, 1X/DAY, 5 TABLET ? TAKES EVERY NIGHT
     Dates: start: 20171204
  10. VINCRISTINE SULFATE. [Suspect]
     Active Substance: VINCRISTINE SULFATE
     Indication: CHEMOTHERAPY
     Dosage: UNK
     Dates: start: 20171129
  11. TRAMADOL. [Concomitant]
     Active Substance: TRAMADOL
     Dosage: UNK, 1?2 EVERY 4 HOURS WHEN NECESSARY. TAKES 50MG FOUR TIMES A DAY.
  12. PARACETAMOL [Concomitant]
     Active Substance: ACETAMINOPHEN
     Dosage: 4 G, 1X/DAY

REACTIONS (1)
  - Neutropenic sepsis [Recovered/Resolved]
